FAERS Safety Report 22649911 (Version 1)
Quarter: 2023Q2

REPORT INFORMATION
  Report Type: Spontaneous
  Country: US (occurrence: None)
  Receive Date: 20230627
  Receipt Date: 20230627
  Transmission Date: 20230722
  Serious: Yes (Disabling, Other)
  Sender: FDA-Public Use
  Company Number: None

PATIENT
  Age: 65 Year
  Sex: Male
  Weight: 71.67 kg

DRUGS (13)
  1. SEMGLEE (INSULIN GLARGINE-YFGN) [Suspect]
     Active Substance: INSULIN GLARGINE-YFGN
     Indication: Blood insulin increased
     Dosage: FREQUENCY : ONCE;?
  2. HALDOL [Concomitant]
     Active Substance: HALOPERIDOL
  3. AMLODIPINE [Concomitant]
     Active Substance: AMLODIPINE BESYLATE
  4. glipide er [Concomitant]
  5. VITAMIN E [Concomitant]
     Active Substance: .ALPHA.-TOCOPHEROL
  6. VITAMIN D [Concomitant]
     Active Substance: VITAMIN D NOS
  7. VITAMIN C [Concomitant]
     Active Substance: ASCORBIC ACID
  8. VITAMIN B COMPLEX [Concomitant]
     Active Substance: CYANOCOBALAMIN\DEXPANTHENOL\NIACINAMIDE\PYRIDOXINE HYDROCHLORIDE\RIBOFLAVIN 5^-PHOSPHATE SODIUM\THIA
  9. FLAXSEED [Concomitant]
     Active Substance: FLAX SEED
  10. biberry [Concomitant]
  11. GARLIC [Concomitant]
     Active Substance: GARLIC
  12. ZINC [Concomitant]
     Active Substance: ZINC
  13. COENZYME Q10 [Concomitant]
     Active Substance: DIETARY SUPPLEMENT\UBIDECARENONE

REACTIONS (6)
  - Peripheral swelling [None]
  - Muscle spasms [None]
  - Pain in extremity [None]
  - Gait disturbance [None]
  - Walking aid user [None]
  - Balance disorder [None]

NARRATIVE: CASE EVENT DATE: 20220218
